FAERS Safety Report 5215598-3 (Version None)
Quarter: 2007Q1

REPORT INFORMATION
  Report Type: 
  Country: None (occurrence: None)
  Receive Date: 20070123
  Receipt Date: 20070115
  Transmission Date: 20070707
  Serious: Yes (Hospitalization)
  Sender: FDA-Public Use
  Company Number: PHRM2007FR00508

PATIENT
  Age: 83 Year
  Sex: Female

DRUGS (3)
  1. IMOVANE [Concomitant]
     Dosage: 3.75 MG, QD
     Route: 048
     Dates: start: 20060819, end: 20061204
  2. EXELON [Suspect]
     Dosage: 1.5 MG, BID
     Route: 048
     Dates: start: 20061130, end: 20061204
  3. ACETAMINOPHEN AND TRAMADOL HCL [Concomitant]
     Dosage: 325/37.5 MG, TID
     Route: 048
     Dates: start: 20060804, end: 20061205

REACTIONS (6)
  - HEADACHE [None]
  - HEART RATE INCREASED [None]
  - LARYNGOSPASM [None]
  - MYDRIASIS [None]
  - SOMNOLENCE [None]
  - STATUS EPILEPTICUS [None]
